FAERS Safety Report 11659497 (Version 1)
Quarter: 2015Q4

REPORT INFORMATION
  Report Type: Spontaneous
  Country: US (occurrence: US)
  Receive Date: 20151026
  Receipt Date: 20151026
  Transmission Date: 20160304
  Serious: No
  Sender: FDA-Public Use
  Company Number: US-BIOGENIDEC-2015BI142883

PATIENT
  Age: 41 Year
  Sex: Female

DRUGS (3)
  1. QUETIAPINE [Concomitant]
     Active Substance: QUETIAPINE
  2. TECFIDERA [Suspect]
     Active Substance: DIMETHYL FUMARATE
     Indication: MULTIPLE SCLEROSIS
     Route: 048
     Dates: start: 20150203
  3. SERTRALINE [Concomitant]
     Active Substance: SERTRALINE HYDROCHLORIDE

REACTIONS (2)
  - Nasopharyngitis [Recovered/Resolved]
  - White blood cell count decreased [Unknown]
